FAERS Safety Report 13660724 (Version 3)
Quarter: 2017Q3

REPORT INFORMATION
  Report Type: Spontaneous
  Country: DK (occurrence: DK)
  Receive Date: 20170616
  Receipt Date: 20170802
  Transmission Date: 20171127
  Serious: Yes (Hospitalization)
  Sender: FDA-Public Use
  Company Number: DK-CELGENEUS-DNK-20170510306

PATIENT
  Age: 71 Year
  Sex: Female
  Weight: 95 kg

DRUGS (18)
  1. DEXAMETHASONE ORAL [Suspect]
     Active Substance: DEXAMETHASONE
     Indication: PLASMA CELL MYELOMA
     Dosage: 20 MILLIGRAM
     Route: 048
     Dates: start: 20150721, end: 20170502
  2. SPERSADEX [Concomitant]
     Indication: CATARACT
     Dosage: 3 DROPS
     Route: 048
     Dates: start: 20170126
  3. ZOPLICONE [Concomitant]
     Active Substance: ZOPICLONE
     Indication: INSOMNIA
     Route: 048
     Dates: start: 20161026
  4. PARACETAMOL [Concomitant]
     Active Substance: ACETAMINOPHEN
     Indication: KNEE ARTHROPLASTY
     Dosage: 4 GRAM
     Route: 048
     Dates: start: 20170501
  5. FRAGMIN [Concomitant]
     Active Substance: DALTEPARIN SODIUM
     Indication: PULMONARY EMBOLISM
     Dosage: 1800 IU (INTERNATIONAL UNIT)
     Route: 058
     Dates: start: 20150831
  6. MAGNESIUM OXIDE. [Concomitant]
     Active Substance: MAGNESIUM OXIDE
     Indication: CONSTIPATION PROPHYLAXIS
     Dosage: 1000 MILLIGRAM
     Route: 048
  7. XYLOMETAZOLINE [Concomitant]
     Active Substance: XYLOMETAZOLINE
     Indication: INFLUENZA
     Dosage: 1500 MILLIGRAM
     Route: 045
     Dates: start: 20160401
  8. AMOXICILLIN/CLAVULANIC ACID [Concomitant]
     Active Substance: AMOXICILLIN\CLAVULANIC ACID
     Indication: INFLUENZA
     Dosage: 1500 MILLIGRAM
     Route: 048
     Dates: start: 20160401
  9. IMADRAX [Concomitant]
     Active Substance: AMOXICILLIN
     Indication: VIRAL UPPER RESPIRATORY TRACT INFECTION
     Dosage: 1500 MILLIGRAM
     Route: 048
     Dates: start: 20170118
  10. ZOVIR [Concomitant]
     Active Substance: ACYCLOVIR
     Indication: HERPES VIRUS INFECTION
     Dosage: 800 MILLIGRAM
     Route: 048
     Dates: start: 20150821
  11. ZOLEDRONIC ACID [Concomitant]
     Active Substance: ZOLEDRONIC ACID
     Indication: PROPHYLAXIS
     Dosage: .0667 MILLIGRAM
     Route: 048
     Dates: start: 20161206
  12. OSELTAMIVIR [Concomitant]
     Active Substance: OSELTAMIVIR
     Indication: INFLUENZA
     Dosage: 90 MILLIGRAM
     Route: 048
     Dates: start: 20160331
  13. DARATUMUMAB [Suspect]
     Active Substance: DARATUMUMAB
     Indication: PLASMA CELL MYELOMA
     Dosage: 1424 MILLIGRAM
     Route: 041
     Dates: start: 20150721, end: 20170510
  14. ACETYLSALICYLIC ACID [Concomitant]
     Active Substance: ASPIRIN
     Indication: PROPHYLAXIS
     Dosage: 150 MILLIGRAM
     Route: 048
     Dates: start: 20150828
  15. LESTID [Concomitant]
     Active Substance: COLESTIPOL
     Indication: DIARRHOEA
     Dosage: .1667 MILLIGRAM
     Route: 048
     Dates: start: 20170412
  16. REVLIMID [Suspect]
     Active Substance: LENALIDOMIDE
     Indication: PLASMA CELL MYELOMA
     Dosage: 15 MILLIGRAM
     Route: 048
     Dates: start: 20150721, end: 20170515
  17. IMODIUM [Concomitant]
     Active Substance: LOPERAMIDE HYDROCHLORIDE
     Indication: DIARRHOEA
     Route: 048
     Dates: start: 20170315
  18. ZOPLICONE [Concomitant]
     Active Substance: ZOPICLONE
     Route: 048
     Dates: start: 20161026

REACTIONS (2)
  - Infection [Recovered/Resolved]
  - Osteoarthritis [Recovered/Resolved]

NARRATIVE: CASE EVENT DATE: 20170502
